FAERS Safety Report 8404159 (Version 2)
Quarter: 2013Q2

REPORT INFORMATION
  Report Type: Spontaneous
  Country: US (occurrence: None)
  Receive Date: 20111227
  Receipt Date: 20120426
  Transmission Date: 20140414
  Serious: Yes (Other)
  Sender: FDA-Public Use
  Company Number: PHEH2011US010074

PATIENT
  Age: 52 Year
  Sex: Female

DRUGS (10)
  1. GILENYA [Suspect]
     Indication: MULTIPLE SCLEROSIS
     Dosage: 0.5 MG, QD, ORAL
     Route: 048
     Dates: start: 20110912, end: 20111122
  2. SYNTHROID [Concomitant]
  3. METFORMIN HYDROCHLORIDE [Concomitant]
  4. BACLOFEN [Concomitant]
  5. ASPIRIN [Concomitant]
  6. VITAMIN D (ERGOCALCIFEROL) [Concomitant]
  7. VICTOZA (LIRAGLUTIDE) [Concomitant]
  8. ASA (ACETYLSALICYLIC ACID) [Concomitant]
  9. CALCIUM (CALCIUM) [Concomitant]
  10. MULTIVITAMINS (ASCORBIC ACID, ERGOCALCIFEROL, FOLIC ACID, NICOTINAMIDE, PANTHENOL, RETINOL, RIBOFLAVIN, THIAMINE HYDROCHLORIDE) [Concomitant]

REACTIONS (4)
  - MACULAR OEDEMA [None]
  - INTRAOCULAR PRESSURE INCREASED [None]
  - Visual acuity reduced [None]
  - Colour vision tests abnormal [None]
